FAERS Safety Report 23214491 (Version 2)
Quarter: 2023Q4

REPORT INFORMATION
  Report Type: Report from Study
  Country: JP (occurrence: None)
  Receive Date: 20231121
  Receipt Date: 20231129
  Transmission Date: 20240110
  Serious: Yes (Death, Hospitalization)
  Sender: FDA-Public Use
  Company Number: 2023A249819

PATIENT
  Age: 49 Year
  Sex: Female
  Weight: 55 kg

DRUGS (5)
  1. LYNPARZA [Suspect]
     Active Substance: OLAPARIB
     Indication: Breast cancer
     Route: 048
     Dates: start: 20191213, end: 20200207
  2. LYNPARZA [Suspect]
     Active Substance: OLAPARIB
     Indication: Breast cancer
     Route: 048
     Dates: start: 20200221, end: 20200305
  3. LYNPARZA [Suspect]
     Active Substance: OLAPARIB
     Indication: Breast cancer
     Route: 048
     Dates: start: 20200319, end: 20200513
  4. LYNPARZA [Suspect]
     Active Substance: OLAPARIB
     Indication: Breast cancer
     Route: 048
     Dates: start: 20200514, end: 20200708
  5. LYNPARZA [Suspect]
     Active Substance: OLAPARIB
     Indication: Breast cancer
     Route: 048
     Dates: start: 20200709, end: 20200819

REACTIONS (4)
  - Anaemia [Not Recovered/Not Resolved]
  - Tumour marker increased [Unknown]
  - Metastases to liver [Unknown]
  - Breast cancer [Fatal]

NARRATIVE: CASE EVENT DATE: 20191226
